FAERS Safety Report 20502766 (Version 2)
Quarter: 2022Q3

REPORT INFORMATION
  Report Type: Spontaneous
  Country: CA (occurrence: CA)
  Receive Date: 20220222
  Receipt Date: 20220711
  Transmission Date: 20221027
  Serious: Yes (Other)
  Sender: FDA-Public Use
  Company Number: CA-SAMSUNG BIOEPIS-SB-2022-04049

PATIENT
  Age: 53 Year
  Sex: Male

DRUGS (74)
  1. INFLIXIMAB [Suspect]
     Active Substance: INFLIXIMAB
     Indication: Colitis ulcerative
     Dosage: UNKNOWN
     Route: 042
  2. INFLIXIMAB [Suspect]
     Active Substance: INFLIXIMAB
     Indication: Crohn^s disease
     Dosage: UNKNOWN
     Route: 042
  3. INFLIXIMAB [Suspect]
     Active Substance: INFLIXIMAB
     Dosage: UNKNOWN
     Route: 042
  4. INFLIXIMAB [Suspect]
     Active Substance: INFLIXIMAB
     Dosage: UNKNOWN
     Route: 042
  5. ADALIMUMAB [Suspect]
     Active Substance: ADALIMUMAB
     Indication: Deep vein thrombosis
     Dosage: UNKNOWN
     Route: 065
  6. ADALIMUMAB [Suspect]
     Active Substance: ADALIMUMAB
     Indication: Colitis ulcerative
     Dosage: UNKNOWN, SOLUTION SUBCUTANEOUS
     Route: 065
  7. ASACOL [Suspect]
     Active Substance: MESALAMINE
     Indication: Colitis ulcerative
     Dosage: (ENTERIC COATED)
     Route: 065
  8. ASACOL [Suspect]
     Active Substance: MESALAMINE
     Route: 065
  9. ASACOL [Suspect]
     Active Substance: MESALAMINE
     Route: 065
  10. ASACOL [Suspect]
     Active Substance: MESALAMINE
     Route: 065
  11. ASACOL [Suspect]
     Active Substance: MESALAMINE
     Route: 065
  12. ASACOL [Suspect]
     Active Substance: MESALAMINE
     Route: 065
  13. ASACOL [Suspect]
     Active Substance: MESALAMINE
     Route: 065
  14. ASACOL [Suspect]
     Active Substance: MESALAMINE
     Route: 065
  15. BUDESONIDE [Suspect]
     Active Substance: BUDESONIDE
     Indication: Colitis ulcerative
     Dosage: UNKNOWN
     Route: 048
  16. BUDESONIDE [Suspect]
     Active Substance: BUDESONIDE
     Route: 048
  17. BUDESONIDE [Suspect]
     Active Substance: BUDESONIDE
     Dosage: UNKNOWN
     Route: 048
  18. BUDESONIDE [Suspect]
     Active Substance: BUDESONIDE
     Route: 048
  19. BUDESONIDE [Suspect]
     Active Substance: BUDESONIDE
     Route: 048
  20. BUDESONIDE [Suspect]
     Active Substance: BUDESONIDE
     Route: 048
  21. BUDESONIDE [Suspect]
     Active Substance: BUDESONIDE
     Route: 048
  22. CORTATE [Suspect]
     Active Substance: HYDROCORTISONE
     Indication: Colitis ulcerative
     Dosage: UNKNOWN
     Route: 065
  23. CORTATE [Suspect]
     Active Substance: HYDROCORTISONE
     Dosage: UNKNOWN
     Route: 048
  24. CORTATE [Suspect]
     Active Substance: HYDROCORTISONE
     Route: 048
  25. CORTATE [Suspect]
     Active Substance: HYDROCORTISONE
     Route: 048
  26. CORTATE [Suspect]
     Active Substance: HYDROCORTISONE
     Route: 048
  27. CORTIFOAM [Suspect]
     Active Substance: HYDROCORTISONE ACETATE
     Indication: Colitis ulcerative
     Dosage: UNKNOWN, AEROSOL, FOAM
     Route: 065
  28. ENTYVIO [Suspect]
     Active Substance: VEDOLIZUMAB
     Indication: Colitis ulcerative
     Dosage: UNKNOWN, POWDER FOR SOLUTION INTRAVENOUS
     Route: 042
  29. ENTYVIO [Suspect]
     Active Substance: VEDOLIZUMAB
     Indication: Deep vein thrombosis
     Dosage: UNKNOWN
     Route: 042
  30. ENTYVIO [Suspect]
     Active Substance: VEDOLIZUMAB
     Dosage: UNKNOWN
     Route: 065
  31. ENTYVIO [Suspect]
     Active Substance: VEDOLIZUMAB
     Route: 048
  32. HYDROCORTISONE ACETATE [Suspect]
     Active Substance: HYDROCORTISONE ACETATE
     Indication: Colitis ulcerative
     Route: 065
  33. HYDROCORTISONE ACETATE [Suspect]
     Active Substance: HYDROCORTISONE ACETATE
     Indication: Crohn^s disease
     Route: 048
  34. HYDROCORTISONE ACETATE [Suspect]
     Active Substance: HYDROCORTISONE ACETATE
     Route: 048
  35. HYDROCORTISONE ACETATE [Suspect]
     Active Substance: HYDROCORTISONE ACETATE
     Route: 065
  36. HYDROCORTISONE ACETATE [Suspect]
     Active Substance: HYDROCORTISONE ACETATE
     Route: 048
  37. HYDROCORTISONE ACETATE [Suspect]
     Active Substance: HYDROCORTISONE ACETATE
     Dosage: UNKNOWN
     Route: 048
  38. HYDROCORTISONE ACETATE [Suspect]
     Active Substance: HYDROCORTISONE ACETATE
     Route: 048
  39. HYDROCORTISONE ACETATE [Suspect]
     Active Substance: HYDROCORTISONE ACETATE
     Dosage: UNKNOWN
     Route: 042
  40. PREDNISONE [Suspect]
     Active Substance: PREDNISONE
     Indication: Colitis ulcerative
     Dosage: UNKNOWN
     Route: 065
  41. PREDNISONE [Suspect]
     Active Substance: PREDNISONE
     Route: 065
  42. WARFARIN [Suspect]
     Active Substance: WARFARIN
     Indication: Deep vein thrombosis
     Dosage: UNKNOWN
     Route: 065
  43. WARFARIN [Suspect]
     Active Substance: WARFARIN
     Indication: Crohn^s disease
     Dosage: UNKNOWN
     Route: 048
  44. WARFARIN [Suspect]
     Active Substance: WARFARIN
     Route: 048
  45. WARFARIN [Suspect]
     Active Substance: WARFARIN
     Route: 048
  46. MESALAMINE [Suspect]
     Active Substance: MESALAMINE
     Indication: Deep vein thrombosis
     Route: 065
  47. MESALAMINE [Suspect]
     Active Substance: MESALAMINE
     Indication: Colitis ulcerative
     Route: 065
  48. MESALAMINE [Suspect]
     Active Substance: MESALAMINE
     Route: 065
  49. MESALAMINE [Suspect]
     Active Substance: MESALAMINE
     Dosage: UNKNOWN
     Route: 065
  50. MESALAMINE [Suspect]
     Active Substance: MESALAMINE
     Route: 065
  51. MESALAMINE [Suspect]
     Active Substance: MESALAMINE
     Route: 048
  52. MESALAMINE [Suspect]
     Active Substance: MESALAMINE
     Route: 065
  53. MESALAMINE [Suspect]
     Active Substance: MESALAMINE
     Route: 065
  54. MESALAMINE [Suspect]
     Active Substance: MESALAMINE
     Route: 048
  55. MESALAMINE [Suspect]
     Active Substance: MESALAMINE
     Dosage: UNKNOWN
     Route: 048
  56. MESALAMINE [Suspect]
     Active Substance: MESALAMINE
     Indication: Colitis ulcerative
     Dosage: (DELAYED AND EXTENDED RELEASE)
     Route: 065
  57. MESALAMINE [Suspect]
     Active Substance: MESALAMINE
     Dosage: UNKNOWN
     Route: 065
  58. MESALAMINE [Suspect]
     Active Substance: MESALAMINE
     Route: 065
  59. MESALAMINE [Suspect]
     Active Substance: MESALAMINE
     Dosage: UNKNOWN
     Route: 042
  60. MESALAMINE [Suspect]
     Active Substance: MESALAMINE
     Dosage: UNKNOWN
     Route: 048
  61. MESALAMINE [Suspect]
     Active Substance: MESALAMINE
     Dosage: UNKNOWN
     Route: 048
  62. MESALAMINE [Suspect]
     Active Substance: MESALAMINE
     Dosage: UNKNOWN
     Route: 065
  63. SULFASALAZINE [Concomitant]
     Active Substance: SULFASALAZINE
     Indication: Colitis ulcerative
     Dosage: UNKNOWN
     Route: 065
  64. SULFASALAZINE [Concomitant]
     Active Substance: SULFASALAZINE
     Dosage: UNKNOWN
     Route: 065
  65. SULFASALAZINE [Concomitant]
     Active Substance: SULFASALAZINE
     Dosage: UNKNOWN
     Route: 065
  66. SULFASALAZINE [Concomitant]
     Active Substance: SULFASALAZINE
     Dosage: UNKNOWN
     Route: 065
  67. SULFASALAZINE [Concomitant]
     Active Substance: SULFASALAZINE
     Dosage: UNKNOWN
     Route: 065
  68. SULFASALAZINE [Concomitant]
     Active Substance: SULFASALAZINE
     Dosage: UNKNOWN
     Route: 065
  69. HUMIRA [Concomitant]
     Active Substance: ADALIMUMAB
     Indication: Deep vein thrombosis
     Dosage: UNKNOWN
     Route: 065
  70. HUMIRA [Concomitant]
     Active Substance: ADALIMUMAB
     Indication: Crohn^s disease
     Route: 048
  71. HUMIRA [Concomitant]
     Active Substance: ADALIMUMAB
     Dosage: SOLUTION SUBCUTANEOUS
     Route: 048
  72. METHOTREXATE [Concomitant]
     Active Substance: METHOTREXATE
     Indication: Product used for unknown indication
     Dosage: UNKNOWN
     Route: 065
  73. METHOTREXATE [Concomitant]
     Active Substance: METHOTREXATE
     Dosage: UNKNOWN
     Route: 065
  74. METHOTREXATE [Concomitant]
     Active Substance: METHOTREXATE
     Dosage: UNKNOWN
     Route: 065

REACTIONS (12)
  - Bronchiectasis [Unknown]
  - Colitis ulcerative [Unknown]
  - Condition aggravated [Unknown]
  - Deep vein thrombosis [Unknown]
  - Frequent bowel movements [Unknown]
  - Impaired quality of life [Unknown]
  - Loss of personal independence in daily activities [Unknown]
  - Weight decreased [Unknown]
  - Drug ineffective [Unknown]
  - Off label use [Unknown]
  - Medication error [Unknown]
  - Product use in unapproved indication [Unknown]
